FAERS Safety Report 7635357-1 (Version None)
Quarter: 2011Q3

REPORT INFORMATION
  Report Type: 
  Country: None (occurrence: None)
  Receive Date: 20110726
  Receipt Date: 20101011
  Transmission Date: 20111222
  Serious: No
  Sender: FDA-Public Use
  Company Number: US-GLAXOSMITHKLINE-A0885910A

PATIENT
  Sex: Female

DRUGS (1)
  1. EXTINA [Suspect]
     Indication: ROSACEA
     Route: 061
     Dates: start: 20101006

REACTIONS (1)
  - RASH MACULAR [None]
